FAERS Safety Report 7120730-0 (Version None)
Quarter: 2010Q4

REPORT INFORMATION
  Report Type: 
  Country: None (occurrence: None)
  Receive Date: 20101124
  Receipt Date: 20101116
  Transmission Date: 20110411
  Serious: Yes (Other)
  Sender: FDA-Public Use
  Company Number: US-US-EMD SERONO, INC.-7028458

PATIENT
  Sex: Female
  Weight: 62 kg

DRUGS (6)
  1. REBIF [Suspect]
     Indication: MULTIPLE SCLEROSIS
     Route: 058
     Dates: start: 20100716, end: 20101001
  2. REBIF [Suspect]
     Route: 058
     Dates: start: 20101001
  3. TOPROL-XL [Concomitant]
     Indication: HYPERTENSION
  4. LYRICA [Concomitant]
     Indication: NEURALGIA
  5. ZOLOFT [Concomitant]
     Indication: DEPRESSION
  6. VASOCAL [Concomitant]
     Indication: HYPERTENSION

REACTIONS (2)
  - CHALAZION [None]
  - RASH [None]
